FAERS Safety Report 6779866-6 (Version None)
Quarter: 2010Q2

REPORT INFORMATION
  Report Type: 
  Country: None (occurrence: None)
  Receive Date: 20100618
  Receipt Date: 20100614
  Transmission Date: 20101027
  Serious: Yes (Death, Hospitalization, Other)
  Sender: FDA-Public Use
  Company Number: PHHY2010DE39448

PATIENT
  Age: 62 Year
  Sex: Male
  Weight: 78 kg

DRUGS (12)
  1. SANDIMMUNE [Suspect]
     Indication: RENAL TRANSPLANT
     Dosage: 200 MG, BID
     Route: 048
     Dates: start: 19960101, end: 20060101
  2. PROGRAF [Suspect]
     Indication: RENAL TRANSPLANT
     Dosage: 0.5 MG, BID
     Route: 048
     Dates: start: 20060301
  3. PROGRAF [Suspect]
     Dosage: 1 MG, BID
     Route: 048
     Dates: start: 20100407
  4. PROGRAF [Suspect]
     Dosage: 0.5 MG
     Dates: start: 20100415
  5. PROGRAF [Suspect]
     Dosage: 0.5 MG
     Route: 048
     Dates: start: 20100420, end: 20100423
  6. AMLOBETA [Concomitant]
     Indication: HYPERTENSION
     Dosage: 5 MG, BID
     Route: 048
     Dates: start: 20080101
  7. HAEMITON [Concomitant]
     Indication: HYPERTENSION
     Dosage: 0.3 MG, TID
     Route: 048
     Dates: start: 20060101
  8. METOHEXAL [Concomitant]
     Indication: HYPERTENSION
     Dosage: 100 MG, BID
     Route: 048
     Dates: start: 20060301
  9. CIBACEN [Concomitant]
     Indication: HYPERTENSION
     Dosage: 5 MG
     Route: 048
     Dates: start: 20060301
  10. BENZBROMARONE [Concomitant]
     Indication: HYPERURICAEMIA
     Dosage: 100 MG
     Route: 048
     Dates: start: 20060301
  11. TRIAMTEREN COMP.-RATIOPHARM [Concomitant]
     Indication: HYPERTENSION
     Dosage: 1 DF
     Route: 048
     Dates: start: 20060301
  12. LOCOL [Concomitant]
     Indication: CARDIOVASCULAR EVENT PROPHYLAXIS
     Dosage: 40 MG
     Route: 048
     Dates: start: 20060301

REACTIONS (24)
  - ACTIVITIES OF DAILY LIVING IMPAIRED [None]
  - ASTHENIA [None]
  - C-REACTIVE PROTEIN INCREASED [None]
  - COUGH [None]
  - CYTOMEGALOVIRUS INFECTION [None]
  - DIARRHOEA [None]
  - DYSPNOEA [None]
  - FIBROSIS [None]
  - FLUID RETENTION [None]
  - FUNGAL INFECTION [None]
  - HILAR LYMPHADENOPATHY [None]
  - LIPID METABOLISM DISORDER [None]
  - LUNG ADENOCARCINOMA [None]
  - LUNG CANCER METASTATIC [None]
  - LUNG INFILTRATION [None]
  - LYMPHADENECTOMY [None]
  - MARROW HYPERPLASIA [None]
  - PNEUMONIA PRIMARY ATYPICAL [None]
  - PULMONARY CONGESTION [None]
  - PYREXIA [None]
  - RESPIRATORY FAILURE [None]
  - STENOTROPHOMONAS INFECTION [None]
  - TUBERCULOSIS [None]
  - WEIGHT DECREASED [None]
